FAERS Safety Report 6691871-7 (Version None)
Quarter: 2010Q2

REPORT INFORMATION
  Report Type: 
  Country: None (occurrence: None)
  Receive Date: 20100422
  Receipt Date: 20100416
  Transmission Date: 20101027
  Serious: Yes (Hospitalization)
  Sender: FDA-Public Use
  Company Number: US-JNJFOC-20100207906

PATIENT
  Sex: Male

DRUGS (5)
  1. INVEGA [Suspect]
     Indication: PANIC ATTACK
     Route: 048
  2. INVEGA [Suspect]
     Indication: DEPRESSION
     Route: 048
  3. LITHIUM [Concomitant]
     Indication: BIPOLAR DISORDER
  4. SEROQUEL [Concomitant]
     Indication: BIPOLAR DISORDER
  5. TRAZODONE [Concomitant]
     Indication: DEPRESSION

REACTIONS (2)
  - HALLUCINATION, AUDITORY [None]
  - THINKING ABNORMAL [None]
